FAERS Safety Report 9595045 (Version 1)
Quarter: 2013Q4

REPORT INFORMATION
  Report Type: Spontaneous
  Country: FR (occurrence: FR)
  Receive Date: 20131004
  Receipt Date: 20131004
  Transmission Date: 20140711
  Serious: Yes (Death, Hospitalization)
  Sender: FDA-Public Use
  Company Number: FR-ROCHE-1284078

PATIENT
  Age: 84 Year
  Sex: Male

DRUGS (8)
  1. APRANAX [Suspect]
     Indication: PRODUCT USED FOR UNKNOWN INDICATION
     Route: 048
     Dates: end: 20130812
  2. STAGID [Suspect]
     Indication: DIABETES MELLITUS
     Route: 048
     Dates: end: 20130812
  3. KARDEGIC [Concomitant]
     Route: 048
     Dates: end: 20130812
  4. ZALDIAR [Concomitant]
     Route: 048
     Dates: end: 20130812
  5. LIPANTHYL [Concomitant]
     Route: 065
     Dates: end: 20130812
  6. LODOZ [Concomitant]
     Dosage: 10/6.25 MG
     Route: 048
     Dates: end: 20130812
  7. DIAMICRON [Concomitant]
     Indication: DIABETES MELLITUS
     Dosage: 60 MG
     Route: 065
     Dates: end: 20130812
  8. ALTEIS [Concomitant]
     Indication: HYPERTENSION
     Route: 048
     Dates: end: 20130812

REACTIONS (2)
  - Lactic acidosis [Fatal]
  - Renal failure acute [Fatal]
